FAERS Safety Report 9527716 (Version 1)
Quarter: 2013Q3

REPORT INFORMATION
  Report Type: Spontaneous
  Country: US (occurrence: None)
  Receive Date: 20130913
  Receipt Date: 20130913
  Transmission Date: 20140515
  Serious: No
  Sender: FDA-Public Use
  Company Number: None

PATIENT
  Age: 29 Year
  Sex: Female
  Weight: 70.31 kg

DRUGS (2)
  1. MIRENA [Suspect]
     Indication: CONTRACEPTION
     Dosage: IMPLANT
     Dates: start: 20130328, end: 20130916
  2. WOMENS DAILY VITAMIN [Concomitant]

REACTIONS (5)
  - Alopecia [None]
  - Depression [None]
  - Self esteem decreased [None]
  - Headache [None]
  - Pain of skin [None]
